FAERS Safety Report 20380171 (Version 1)
Quarter: 2022Q1

REPORT INFORMATION
  Report Type: Spontaneous
  Country: US (occurrence: US)
  Receive Date: 20220126
  Receipt Date: 20220126
  Transmission Date: 20220423
  Serious: No
  Sender: FDA-Public Use
  Company Number: US-drreddys-SPO/USA/22/0145695

PATIENT
  Age: 55 Year
  Sex: Female

DRUGS (3)
  1. LAMOTRIGINE [Suspect]
     Active Substance: LAMOTRIGINE
     Indication: Seizure
     Dosage: 250MG TABLETS BY MOUTH EVERY NIGHT
     Route: 048
     Dates: start: 20220104, end: 20220105
  2. VITAMINS [Suspect]
     Active Substance: VITAMINS
     Indication: Product used for unknown indication
     Dosage: A YEAR AGO
  3. LAMOTRIGINE [Concomitant]
     Active Substance: LAMOTRIGINE
     Indication: Seizure

REACTIONS (9)
  - Heart rate increased [Recovered/Resolved]
  - Feeling jittery [Recovered/Resolved]
  - Malaise [Recovered/Resolved]
  - Panic attack [Recovered/Resolved]
  - Dyspnoea [Recovered/Resolved]
  - Anxiety [Recovered/Resolved]
  - Symptom recurrence [Recovered/Resolved]
  - Insomnia [Recovered/Resolved]
  - Product administration interrupted [Unknown]
